FAERS Safety Report 10185329 (Version 2)
Quarter: 2014Q2

REPORT INFORMATION
  Report Type: Spontaneous
  Country: US (occurrence: US)
  Receive Date: 20140521
  Receipt Date: 20140620
  Transmission Date: 20141212
  Serious: No
  Sender: FDA-Public Use
  Company Number: US-PFIZER INC-2014137857

PATIENT
  Age: 66 Year
  Sex: Male

DRUGS (3)
  1. SUTENT [Suspect]
     Dosage: 50 MG, DAILY
     Route: 048
     Dates: start: 20140228
  2. SIMVASTATIN [Concomitant]
     Dosage: UNK
  3. TRIBENZOR [Concomitant]
     Dosage: UNK

REACTIONS (5)
  - Nausea [Unknown]
  - Diarrhoea [Unknown]
  - Dry skin [Unknown]
  - Constipation [Unknown]
  - Fatigue [Unknown]
